FAERS Safety Report 9537373 (Version 2)
Quarter: 2013Q4

REPORT INFORMATION
  Report Type: Report from Study
  Country: FR (occurrence: FR)
  Receive Date: 20130919
  Receipt Date: 20131024
  Transmission Date: 20140711
  Serious: Yes (Life-Threatening, Hospitalization)
  Sender: FDA-Public Use
  Company Number: PHHO2013FR012029

PATIENT
  Sex: 0

DRUGS (14)
  1. AFINITOR [Suspect]
     Indication: TRANSITIONAL CELL CARCINOMA METASTATIC
     Dosage: 10 MG, QD
     Route: 048
     Dates: start: 20130812, end: 20130821
  2. CACIT                              /00944201/ [Concomitant]
     Indication: CALCIUM DEFICIENCY
     Dosage: 2 DF, QD
     Route: 048
     Dates: start: 201304
  3. DAFALGAN [Concomitant]
  4. TIORFAN [Concomitant]
  5. FORLAX [Concomitant]
     Indication: PROPHYLAXIS
     Dosage: 2 DF, QD
     Route: 048
     Dates: start: 201304, end: 201308
  6. EUPANTOL [Concomitant]
     Dosage: 40 MG, QD
     Route: 048
     Dates: start: 201304
  7. SOLUPRED [Concomitant]
  8. TEMESTA [Concomitant]
  9. XATRAL [Concomitant]
     Dosage: 1 DF, QD
     Route: 048
     Dates: start: 201301
  10. CORTICOSTEROIDS [Concomitant]
  11. OXYCONTIN [Concomitant]
  12. OXYNORM [Concomitant]
  13. CALCIDOSE VITAMINE D [Concomitant]
  14. SMECTA//DIOSMECTITE [Concomitant]

REACTIONS (8)
  - General physical health deterioration [Not Recovered/Not Resolved]
  - Diarrhoea [Not Recovered/Not Resolved]
  - Oedema peripheral [Not Recovered/Not Resolved]
  - Rectal haemorrhage [Not Recovered/Not Resolved]
  - Colon neoplasm [Unknown]
  - Transitional cell carcinoma metastatic [Not Recovered/Not Resolved]
  - Malignant neoplasm progression [Not Recovered/Not Resolved]
  - Red blood cell count decreased [Not Recovered/Not Resolved]
